FAERS Safety Report 4289095-6 (Version None)
Quarter: 2004Q1

REPORT INFORMATION
  Report Type: 
  Country: None (occurrence: None)
  Receive Date: 20040126
  Receipt Date: 20031114
  Transmission Date: 20041129
  Serious: No
  Sender: FDA-Public Use
  Company Number: USA030332069

PATIENT
  Age: 48 Year
  Sex: Male
  Weight: 50 kg

DRUGS (5)
  1. FORTEO [Suspect]
     Indication: OSTEOPOROSIS
     Dosage: 20 UG/DAY
     Dates: start: 20030319
  2. FOSAMAX [Concomitant]
  3. POTASSIUM CHLORIDE [Concomitant]
  4. MIACALCIN [Concomitant]
  5. PRINIVIL [Concomitant]

REACTIONS (10)
  - BONE PAIN [None]
  - CHILLS [None]
  - ERYTHEMA [None]
  - HEADACHE [None]
  - INJECTION SITE PAIN [None]
  - JOINT STIFFNESS [None]
  - MUSCULAR WEAKNESS [None]
  - PAIN IN JAW [None]
  - PYREXIA [None]
  - RENAL PAIN [None]
